FAERS Safety Report 4413584-4 (Version None)
Quarter: 2004Q3

REPORT INFORMATION
  Report Type: 
  Country: None (occurrence: None)
  Receive Date: 20040728
  Receipt Date: 20040714
  Transmission Date: 20050211
  Serious: Yes (Disabling)
  Sender: FDA-Public Use
  Company Number: USA-2004-0014191

PATIENT
  Age: 2 Year
  Sex: Male
  Weight: 12.6 kg

DRUGS (10)
  1. CEFDITOREN PIVOXIL  (CEFDITOREN PIVOXIL) [Suspect]
     Indication: ASTHMA
     Dosage: 10 MG/KG, DAILY, ORAL
     Route: 048
     Dates: start: 20040326, end: 20040326
  2. CEFDITOREN PIVOXIL  (CEFDITOREN PIVOXIL) [Suspect]
     Indication: OTITIS MEDIA
     Dosage: 10 MG/KG, DAILY, ORAL
     Route: 048
     Dates: start: 20040326, end: 20040326
  3. THEO-DUR [Concomitant]
  4. MUCODYNE (CARBOCISTEINE) [Concomitant]
  5. ASVERIN (TIPEPIDINE HIBENZATE) [Concomitant]
  6. VENETLIN (SALBUTAMOL SULFATE) [Concomitant]
  7. INTAL [Concomitant]
  8. ATOCK (FORMOTEROL FUMARATE) [Concomitant]
  9. BIOFERMIN (ESTREPTOCOCCUS FAECALIS, LACTOBACILLUS ACIDOPHILUS, BACILLU [Concomitant]
  10. ALEVAIRE (TYLOXAPOL) [Concomitant]

REACTIONS (5)
  - BODY TEMPERATURE DECREASED [None]
  - CONVULSION [None]
  - DEHYDRATION [None]
  - DIARRHOEA [None]
  - MENTAL IMPAIRMENT [None]
